FAERS Safety Report 21312711 (Version 1)
Quarter: 2022Q3

REPORT INFORMATION
  Report Type: Spontaneous
  Country: GB (occurrence: GB)
  Receive Date: 20220909
  Receipt Date: 20220909
  Transmission Date: 20221027
  Serious: Yes (Life-Threatening, Hospitalization, Disabling, Other)
  Sender: FDA-Public Use
  Company Number: None

PATIENT
  Age: 69 Year
  Sex: Female
  Weight: 70 kg

DRUGS (1)
  1. PIOGLITAZONE [Suspect]
     Active Substance: PIOGLITAZONE
     Indication: Type 2 diabetes mellitus
     Dosage: 30 MG ONCE DAILY
     Dates: end: 20220826

REACTIONS (6)
  - Hyponatraemia [Not Recovered/Not Resolved]
  - Oedema [Not Recovered/Not Resolved]
  - Dizziness [Not Recovered/Not Resolved]
  - Hypotension [Not Recovered/Not Resolved]
  - Hip fracture [Recovering/Resolving]
  - Confusional state [Recovering/Resolving]

NARRATIVE: CASE EVENT DATE: 20220820
